FAERS Safety Report 8896254 (Version 1)
Quarter: 2012Q4

REPORT INFORMATION
  Report Type: Spontaneous
  Country: US (occurrence: None)
  Receive Date: 20121106
  Receipt Date: 20121106
  Transmission Date: 20130627
  Serious: Yes (Other)
  Sender: FDA-Public Use
  Company Number: None

PATIENT
  Age: 38 Year
  Sex: Female
  Weight: 86.18 kg

DRUGS (4)
  1. LORAZEPAM [Suspect]
     Indication: TREMOR OF HANDS
     Dosage: 30  1 as needed  po
     Route: 048
     Dates: start: 20120103, end: 20121105
  2. LORAZEPAM [Suspect]
     Indication: SWALLOWING DIFFICULT
     Dosage: 30  1 as needed  po
     Route: 048
     Dates: start: 20120103, end: 20121105
  3. LORAZEPAM [Suspect]
     Indication: BREATHING DIFFICULT
     Dosage: 30  1 as needed  po
     Route: 048
     Dates: start: 20120103, end: 20121105
  4. TEMAZEPAM [Suspect]
     Indication: INSOMNIA
     Dosage: 30  1 nightly  po
     Route: 048

REACTIONS (6)
  - Abdominal pain upper [None]
  - Drug effect decreased [None]
  - Product substitution issue [None]
  - Product quality issue [None]
  - Product contamination [None]
  - Capsule physical issue [None]
